FAERS Safety Report 4481301-8 (Version None)
Quarter: 2004Q4

REPORT INFORMATION
  Report Type: 
  Country: None (occurrence: None)
  Receive Date: 20040923
  Receipt Date: 20040802
  Transmission Date: 20050328
  Serious: No
  Sender: FDA-Public Use
  Company Number: USA030639481

PATIENT
  Age: 73 Year
  Sex: Female
  Weight: 51 kg

DRUGS (9)
  1. FORTEO [Suspect]
     Indication: OSTEOPOROSIS
     Dosage: 20 UG DAY
     Dates: start: 20030606
  2. CALCIUM [Concomitant]
  3. NEXIUM [Concomitant]
  4. VIOXX [Concomitant]
  5. TYLENOL (PARACEAMOL) [Concomitant]
  6. AMBEIN (ZOLPIDEM TARTRATE) [Concomitant]
  7. VITAMINS NOS [Concomitant]
  8. CALCIUM CITRATE [Concomitant]
  9. PAXIL [Concomitant]

REACTIONS (4)
  - ASTHENIA [None]
  - DECREASED APPETITE [None]
  - DYSGEUSIA [None]
  - NAUSEA [None]
